FAERS Safety Report 8514237-3 (Version None)
Quarter: 2012Q3

REPORT INFORMATION
  Report Type: 
  Country: None (occurrence: None)
  Receive Date: 20120717
  Receipt Date: 20120712
  Transmission Date: 20120928
  Serious: No
  Sender: FDA-Public Use
  Company Number: US-TEVA-348442USA

PATIENT
  Sex: Female
  Weight: 43.13 kg

DRUGS (3)
  1. M.V.I. [Concomitant]
     Indication: SUPPLEMENTATION THERAPY
  2. PLAN B ONE-STEP [Suspect]
     Indication: POST COITAL CONTRACEPTION
     Dosage: 1.5 MILLIGRAM;
     Route: 048
     Dates: start: 20120630, end: 20120630
  3. ORTHO CYCLEN-28 [Concomitant]
     Indication: CONTRACEPTION
     Dates: start: 20090101

REACTIONS (1)
  - BREAST PAIN [None]
